FAERS Safety Report 16939958 (Version 1)
Quarter: 2019Q4

REPORT INFORMATION
  Report Type: Report from Study
  Country: ES (occurrence: ES)
  Receive Date: 20191021
  Receipt Date: 20191021
  Transmission Date: 20200122
  Serious: Yes (Life-Threatening, Hospitalization)
  Sender: FDA-Public Use
  Company Number: ES-TEVA-2019-ES-1123391

PATIENT
  Age: 77 Year
  Sex: Female

DRUGS (2)
  1. METOTREXATO (418A) [Interacting]
     Active Substance: METHOTREXATE
     Indication: ARTHRITIS
     Route: 048
     Dates: start: 20180313, end: 20180515
  2. PREDNISONA (886A) [Suspect]
     Active Substance: PREDNISONE
     Indication: ARTHRITIS
     Dosage: 5 MG PER DAY
     Route: 048
     Dates: start: 20180227

REACTIONS (2)
  - Herpes zoster disseminated [Recovered/Resolved with Sequelae]
  - Drug interaction [Unknown]

NARRATIVE: CASE EVENT DATE: 20180511
